FAERS Safety Report 14114887 (Version 1)
Quarter: 2017Q4

REPORT INFORMATION
  Report Type: Spontaneous
  Country: US (occurrence: US)
  Receive Date: 20171023
  Receipt Date: 20171023
  Transmission Date: 20180321
  Serious: Yes (Other)
  Sender: FDA-Public Use
  Company Number: US-GLAXOSMITHKLINE-US2017161319

PATIENT
  Age: 75 Year
  Sex: Female

DRUGS (8)
  1. VENTOLIN HFA [Suspect]
     Active Substance: ALBUTEROL SULFATE
     Indication: ASTHMA
     Dosage: 2 PUFF(S), UNK
     Route: 055
  2. ADVAIR DISKUS [Concomitant]
     Active Substance: FLUTICASONE PROPIONATE\SALMETEROL XINAFOATE
  3. LISINOPRIL. [Concomitant]
     Active Substance: LISINOPRIL
  4. BREO ELLIPTA [Suspect]
     Active Substance: FLUTICASONE FUROATE\VILANTEROL TRIFENATATE
     Indication: ASTHMA
     Dosage: 1 PUFF(S), UNK
     Route: 055
  5. ASPIRIN. [Concomitant]
     Active Substance: ASPIRIN
  6. FISH OIL [Concomitant]
     Active Substance: FISH OIL
  7. RANITIDINE. [Concomitant]
     Active Substance: RANITIDINE
  8. MELATONIN [Concomitant]
     Active Substance: MELATONIN

REACTIONS (3)
  - Spinal operation [Unknown]
  - Aphonia [Unknown]
  - Underdose [Unknown]

NARRATIVE: CASE EVENT DATE: 20170907
